FAERS Safety Report 14034712 (Version 1)
Quarter: 2017Q4

REPORT INFORMATION
  Report Type: Spontaneous
  Country: US (occurrence: None)
  Receive Date: 20171003
  Receipt Date: 20171003
  Transmission Date: 20180321
  Serious: No
  Sender: FDA-Public Use
  Company Number: None

PATIENT
  Age: 89 Year
  Sex: Male
  Weight: 74.84 kg

DRUGS (3)
  1. TAMSULOSIN HCL 0.4MG CAPSULE [Suspect]
     Active Substance: TAMSULOSIN
     Indication: BENIGN NEOPLASM OF PROSTATE
     Route: 048
     Dates: start: 20170126, end: 20170706
  2. VITAMIN B12 [Concomitant]
     Active Substance: CYANOCOBALAMIN
  3. VITAMIN D3 [Concomitant]
     Active Substance: CHOLECALCIFEROL

REACTIONS (3)
  - Urinary retention [None]
  - Balance disorder [None]
  - Fall [None]

NARRATIVE: CASE EVENT DATE: 20170704
